FAERS Safety Report 6560138-X (Version None)
Quarter: 2010Q1

REPORT INFORMATION
  Report Type: 
  Country: None (occurrence: None)
  Receive Date: 20100129
  Receipt Date: 20050127
  Transmission Date: 20100710
  Serious: No
  Sender: FDA-Public Use
  Company Number: US-ALLERGAN-200411512

PATIENT
  Age: 77 Year
  Sex: Female
  Weight: 45.455 kg

DRUGS (1)
  1. BOTOX [Suspect]
     Indication: PAIN
     Dosage: INJECTED INTO NECK, HEAD, AND SHOULDERS
     Route: 030
     Dates: start: 20041116

REACTIONS (2)
  - HAIR GROWTH ABNORMAL [None]
  - PARAESTHESIA [None]
